FAERS Safety Report 4408504-2 (Version None)
Quarter: 2004Q3

REPORT INFORMATION
  Report Type: 
  Country: None (occurrence: None)
  Receive Date: 20040726
  Receipt Date: 20040726
  Transmission Date: 20050211
  Serious: Yes (Death)
  Sender: FDA-Public Use
  Company Number: None

PATIENT
  Age: 51 Year
  Sex: Male
  Weight: 51 kg

DRUGS (8)
  1. RETEPLASE (RETAVASE) [Suspect]
     Indication: MYOCARDIAL INFARCTION
     Dosage: UNKNOWN
     Dates: start: 20040321
  2. INTEGRILIN [Suspect]
     Indication: MYOCARDIAL INFARCTION
     Dosage: 2 MCG/KG/MIN INFUSION
     Dates: start: 20040321
  3. ASPIRIN [Concomitant]
  4. CLOPIDOGREL [Concomitant]
  5. CAPTOPRIL [Concomitant]
  6. CEFUROXIME [Concomitant]
  7. METOPROLOL [Concomitant]
  8. PANTOPRAZOLE [Concomitant]

REACTIONS (3)
  - APHASIA [None]
  - CEREBRAL HAEMORRHAGE [None]
  - HAEMATOMA [None]
